FAERS Safety Report 9224961 (Version 1)
Quarter: 2013Q2

REPORT INFORMATION
  Report Type: Spontaneous
  Country: US (occurrence: US)
  Receive Date: 20130411
  Receipt Date: 20130411
  Transmission Date: 20140414
  Serious: Yes (Other)
  Sender: FDA-Public Use
  Company Number: US-BRISTOL-MYERS SQUIBB COMPANY-17327511

PATIENT
  Sex: 0

DRUGS (2)
  1. NULOJIX [Suspect]
     Indication: RENAL TRANSPLANT
     Dates: start: 2012
  2. PREDNISONE [Concomitant]
     Dates: start: 2012

REACTIONS (1)
  - BK virus infection [Unknown]
